FAERS Safety Report 19867921 (Version 3)
Quarter: 2022Q1

REPORT INFORMATION
  Report Type: Spontaneous
  Country: CN (occurrence: CN)
  Receive Date: 20210922
  Receipt Date: 20220106
  Transmission Date: 20220423
  Serious: Yes (Other)
  Sender: FDA-Public Use
  Company Number: CN-BLUEPRINT MEDICINES CORPORATION-SO-CN-2021-001608

PATIENT
  Age: 56 Year
  Sex: Female

DRUGS (2)
  1. GAVRETO [Suspect]
     Active Substance: PRALSETINIB
     Indication: Product used for unknown indication
     Route: 048
     Dates: start: 20210824, end: 20210831
  2. GAVRETO [Suspect]
     Active Substance: PRALSETINIB
     Route: 048
     Dates: start: 20210901

REACTIONS (12)
  - Renal impairment [Unknown]
  - Seizure [Recovering/Resolving]
  - Feeling cold [Recovering/Resolving]
  - Hepatic function abnormal [Unknown]
  - Abdominal discomfort [Unknown]
  - Pulmonary mass [Unknown]
  - Dyspepsia [Unknown]
  - Blood creatinine increased [Unknown]
  - Transaminases increased [Unknown]
  - Pyrexia [Recovering/Resolving]
  - Anaemia [Unknown]
  - Hypertension [Recovering/Resolving]

NARRATIVE: CASE EVENT DATE: 20210828
